FAERS Safety Report 7809515-7 (Version None)
Quarter: 2011Q4

REPORT INFORMATION
  Report Type: 
  Country: None (occurrence: None)
  Receive Date: 20111012
  Receipt Date: 20111003
  Transmission Date: 20120403
  Serious: Yes (Hospitalization)
  Sender: FDA-Public Use
  Company Number: PHFR2011GB01471

PATIENT
  Sex: Female

DRUGS (3)
  1. CLOZAPINE [Suspect]
     Dosage: 150 MG MANE, 250 MG NOCTE
     Route: 048
  2. CLOZAPINE [Suspect]
     Indication: SCHIZOPHRENIA, PARANOID TYPE
     Dosage: 150 MG MANE, 250 MG NOCTE
     Route: 048
     Dates: start: 20040206
  3. CLOZAPINE [Suspect]
     Dosage: 150 MG, BID
     Route: 048
     Dates: start: 20110301

REACTIONS (7)
  - DEHYDRATION [None]
  - DIARRHOEA [None]
  - HYPERSOMNIA [None]
  - RENAL DISORDER [None]
  - MENTAL IMPAIRMENT [None]
  - GENERAL PHYSICAL HEALTH DETERIORATION [None]
  - MYOCARDIAL INFARCTION [None]
